FAERS Safety Report 8852678 (Version 2)
Quarter: 2014Q2

REPORT INFORMATION
  Report Type: Spontaneous
  Country: FR (occurrence: FR)
  Receive Date: 20121022
  Receipt Date: 20131018
  Transmission Date: 20141212
  Serious: Yes (Hospitalization, Other)
  Sender: FDA-Public Use
  Company Number: FR-PFIZER INC-2012258571

PATIENT
  Age: 33 Year
  Sex: Female

DRUGS (3)
  1. SOLU-MEDROL [Suspect]
     Indication: NEUROMYELITIS OPTICA
     Dosage: 1 G, 1X/DAY
     Route: 042
     Dates: start: 20120812, end: 20120816
  2. CELLCEPT [Suspect]
     Indication: NEUROMYELITIS OPTICA
     Dosage: 500 MG, 2X/DAY
     Route: 048
     Dates: start: 20120817, end: 20120828
  3. IMUREL [Suspect]
     Indication: NEUROMYELITIS OPTICA
     Dosage: 4 DF, 1X/DAY
     Route: 048
     Dates: start: 2004, end: 20120817

REACTIONS (3)
  - Cytomegalovirus infection [Recovered/Resolved]
  - Neutropenia [Recovered/Resolved]
  - Haemoglobin decreased [Unknown]
